FAERS Safety Report 21447683 (Version 1)
Quarter: 2022Q4

REPORT INFORMATION
  Report Type: Report from Study
  Country: US (occurrence: US)
  Receive Date: 20221012
  Receipt Date: 20221012
  Transmission Date: 20230113
  Serious: Yes (Hospitalization, Other)
  Sender: FDA-Public Use
  Company Number: US-ALLERGAN-2233181US

PATIENT
  Sex: Female
  Weight: 77.564 kg

DRUGS (2)
  1. LINACLOTIDE [Suspect]
     Active Substance: LINACLOTIDE
     Indication: Intestinal obstruction
     Dosage: 290 ?G, QD
     Route: 048
     Dates: start: 2018
  2. LINACLOTIDE [Suspect]
     Active Substance: LINACLOTIDE
     Indication: Irritable bowel syndrome
     Dosage: 145 ?G, QD
     Route: 048
     Dates: start: 2016, end: 2018

REACTIONS (22)
  - Transient ischaemic attack [Not Recovered/Not Resolved]
  - Urinary tract disorder [Recovering/Resolving]
  - Urinary tract infection [Recovering/Resolving]
  - Atrial fibrillation [Not Recovered/Not Resolved]
  - Nephritis [Recovered/Resolved]
  - Gastrointestinal disorder [Recovering/Resolving]
  - Gastrointestinal haemorrhage [Recovering/Resolving]
  - Intestinal obstruction [Not Recovered/Not Resolved]
  - Seizure [Recovering/Resolving]
  - Parkinson^s disease [Unknown]
  - Condition aggravated [Not Recovered/Not Resolved]
  - Cognitive disorder [Recovering/Resolving]
  - Full blood count abnormal [Recovering/Resolving]
  - Blood iron decreased [Recovering/Resolving]
  - Polyp [Not Recovered/Not Resolved]
  - Diplopia [Not Recovered/Not Resolved]
  - Tremor [Unknown]
  - Ataxia [Unknown]
  - Haemorrhoids [Unknown]
  - Product use in unapproved indication [Unknown]
  - Cognitive disorder [Not Recovered/Not Resolved]
  - Drug ineffective [Unknown]

NARRATIVE: CASE EVENT DATE: 20180101
